FAERS Safety Report 5329794-8 (Version None)
Quarter: 2007Q2

REPORT INFORMATION
  Report Type: 
  Country: None (occurrence: None)
  Receive Date: 20070521
  Receipt Date: 20070509
  Transmission Date: 20071010
  Serious: Yes (Hospitalization)
  Sender: FDA-Public Use
  Company Number: FI-AMGEN-US224996

PATIENT
  Age: 54 Year
  Sex: Male

DRUGS (3)
  1. ENBREL [Suspect]
     Indication: RHEUMATOID ARTHRITIS
     Route: 058
     Dates: start: 20060201, end: 20060301
  2. ENBREL [Suspect]
     Route: 058
     Dates: start: 20060301
  3. METHOTREXATE [Concomitant]
     Dosage: 15 MG PER WEEK
     Route: 048

REACTIONS (3)
  - DIPLOPIA [None]
  - INTRACRANIAL VENOUS SINUS THROMBOSIS [None]
  - PULMONARY EMBOLISM [None]
